FAERS Safety Report 21177308 (Version 1)
Quarter: 2022Q3

REPORT INFORMATION
  Report Type: Spontaneous
  Country: US (occurrence: US)
  Receive Date: 20220805
  Receipt Date: 20220805
  Transmission Date: 20221027
  Serious: No
  Sender: FDA-Public Use
  Company Number: US-MAYNE PHARMA-2022MYN000379

PATIENT
  Sex: Female

DRUGS (1)
  1. NEXTSTELLIS [Suspect]
     Active Substance: DROSPIRENONE\ESTETROL MONOHYDRATE
     Indication: Menstruation irregular
     Dosage: UNK UNK, QD
     Route: 048
     Dates: start: 20220205, end: 20220405

REACTIONS (1)
  - Drug ineffective for unapproved indication [Recovered/Resolved]
